FAERS Safety Report 9479056 (Version 3)
Quarter: 2014Q3

REPORT INFORMATION
  Report Type: Report from Study
  Country: JP (occurrence: JP)
  Receive Date: 20130827
  Receipt Date: 20140912
  Transmission Date: 20150326
  Serious: Yes (Hospitalization, Other)
  Sender: FDA-Public Use
  Company Number: JP-BAYER-2013-102645

PATIENT
  Age: 41 Year
  Sex: Female
  Weight: 45 kg

DRUGS (7)
  1. STIVARGA [Suspect]
     Active Substance: REGORAFENIB
     Indication: COLORECTAL CANCER
     Dosage: 80 MG, QD
     Route: 048
     Dates: start: 20130928, end: 20130930
  2. STIVARGA [Suspect]
     Active Substance: REGORAFENIB
     Indication: COLORECTAL CANCER
     Dosage: 120 MG, QD
     Route: 048
     Dates: start: 20130919, end: 20130922
  3. LASIX [Concomitant]
     Active Substance: FUROSEMIDE
     Dosage: DAILY DOSE 20 MG
     Route: 048
  4. KERATINAMIN [Concomitant]
     Active Substance: UREA
     Indication: DRUG TOXICITY PROPHYLAXIS
     Dosage: UNK
     Route: 061
  5. STIVARGA [Suspect]
     Active Substance: REGORAFENIB
     Indication: COLORECTAL CANCER
     Dosage: 160 MG, QD
     Route: 048
     Dates: start: 20130725, end: 20130802
  6. STIVARGA [Suspect]
     Active Substance: REGORAFENIB
     Indication: COLORECTAL CANCER
     Dosage: 120 MG, QD
     Route: 048
     Dates: start: 20130912, end: 20130913
  7. DERMOVATE [Concomitant]
     Active Substance: CLOBETASOL
     Indication: DRUG TOXICITY PROPHYLAXIS
     Dosage: UNK
     Route: 061

REACTIONS (9)
  - Diarrhoea [Recovered/Resolved]
  - Hand-foot-and-mouth disease [Recovering/Resolving]
  - White blood cell count decreased [Recovering/Resolving]
  - Enterocolitis [Recovering/Resolving]
  - Palmar-plantar erythrodysaesthesia syndrome [Not Recovered/Not Resolved]
  - Hypothyroidism [Recovered/Resolved]
  - Malaise [Recovering/Resolving]
  - Melaena [Recovering/Resolving]
  - Anaemia [Not Recovered/Not Resolved]

NARRATIVE: CASE EVENT DATE: 20130728
